FAERS Safety Report 5094430-5 (Version None)
Quarter: 2006Q3

REPORT INFORMATION
  Report Type: 
  Country: None (occurrence: None)
  Receive Date: 20060830
  Receipt Date: 20060808
  Transmission Date: 20061208
  Serious: Yes (Other)
  Sender: FDA-Public Use
  Company Number: CA200605000069

PATIENT
  Sex: Female

DRUGS (2)
  1. XIGRIS [Suspect]
     Indication: SEPTIC SHOCK
     Dosage: 24 , INTRAVENOUS
     Route: 042
     Dates: start: 20060401
  2. XIGRIS [Suspect]
     Indication: SEPTIC SHOCK
     Dosage: 24 , INTRAVENOUS
     Route: 042
     Dates: start: 20060427

REACTIONS (2)
  - INTERNATIONAL NORMALISED RATIO INCREASED [None]
  - PLATELET COUNT DECREASED [None]
